FAERS Safety Report 24917751 (Version 4)
Quarter: 2025Q2

REPORT INFORMATION
  Report Type: Report from Study
  Country: FR (occurrence: FR)
  Receive Date: 20250203
  Receipt Date: 20250517
  Transmission Date: 20250717
  Serious: Yes (Hospitalization, Other)
  Sender: KYOWA
  Company Number: FR-KYOWAKIRIN-2025KK001778

PATIENT

DRUGS (20)
  1. MOGAMULIZUMAB [Suspect]
     Active Substance: MOGAMULIZUMAB
     Indication: Cutaneous T-cell lymphoma
     Route: 042
     Dates: start: 20240523
  2. MOGAMULIZUMAB [Suspect]
     Active Substance: MOGAMULIZUMAB
     Route: 042
     Dates: start: 20240530
  3. MOGAMULIZUMAB [Suspect]
     Active Substance: MOGAMULIZUMAB
     Route: 042
     Dates: start: 20240606
  4. MOGAMULIZUMAB [Suspect]
     Active Substance: MOGAMULIZUMAB
     Route: 042
     Dates: start: 20240613
  5. MOGAMULIZUMAB [Suspect]
     Active Substance: MOGAMULIZUMAB
     Route: 042
     Dates: start: 20240620
  6. MOGAMULIZUMAB [Suspect]
     Active Substance: MOGAMULIZUMAB
     Route: 042
     Dates: start: 20240704
  7. MOGAMULIZUMAB [Suspect]
     Active Substance: MOGAMULIZUMAB
     Route: 042
     Dates: start: 20240718
  8. MOGAMULIZUMAB [Suspect]
     Active Substance: MOGAMULIZUMAB
     Route: 042
     Dates: start: 20240801, end: 20240801
  9. MOGAMULIZUMAB [Suspect]
     Active Substance: MOGAMULIZUMAB
     Route: 042
     Dates: start: 20240814, end: 20240814
  10. MOGAMULIZUMAB [Suspect]
     Active Substance: MOGAMULIZUMAB
     Route: 042
     Dates: start: 20240830, end: 20240830
  11. MOGAMULIZUMAB [Suspect]
     Active Substance: MOGAMULIZUMAB
     Route: 042
     Dates: start: 20240913, end: 20240913
  12. MOGAMULIZUMAB [Suspect]
     Active Substance: MOGAMULIZUMAB
     Route: 042
     Dates: start: 20240927, end: 20240927
  13. MOGAMULIZUMAB [Suspect]
     Active Substance: MOGAMULIZUMAB
     Route: 042
     Dates: start: 20241010, end: 20241010
  14. MOGAMULIZUMAB [Suspect]
     Active Substance: MOGAMULIZUMAB
     Route: 042
     Dates: start: 20241024, end: 20241024
  15. MOGAMULIZUMAB [Suspect]
     Active Substance: MOGAMULIZUMAB
     Route: 042
     Dates: start: 20241107, end: 20241107
  16. MOGAMULIZUMAB [Suspect]
     Active Substance: MOGAMULIZUMAB
     Route: 042
     Dates: start: 20241121, end: 20241121
  17. MOGAMULIZUMAB [Suspect]
     Active Substance: MOGAMULIZUMAB
     Route: 042
     Dates: start: 20241206, end: 20241206
  18. MOGAMULIZUMAB [Suspect]
     Active Substance: MOGAMULIZUMAB
     Route: 042
     Dates: start: 20241220, end: 20241220
  19. MOGAMULIZUMAB [Suspect]
     Active Substance: MOGAMULIZUMAB
     Route: 042
     Dates: start: 20240103, end: 20240103
  20. CHLORMETHINE [CHLORMETHINE HYDROCHLORIDE] [Concomitant]
     Indication: Cutaneous T-cell lymphoma
     Route: 065
     Dates: start: 20240320, end: 20240620

REACTIONS (4)
  - Drug eruption [Not Recovered/Not Resolved]
  - Renal failure [Recovered/Resolved]
  - Perioral dermatitis [Not Recovered/Not Resolved]
  - Lymphopenia [Not Recovered/Not Resolved]

NARRATIVE: CASE EVENT DATE: 20240530
